FAERS Safety Report 7430915-1 (Version None)
Quarter: 2011Q2

REPORT INFORMATION
  Report Type: 
  Country: None (occurrence: None)
  Receive Date: 20110421
  Receipt Date: 20110419
  Transmission Date: 20111010
  Serious: Yes (Hospitalization)
  Sender: FDA-Public Use
  Company Number: US-B.I. PHARMACEUTICALS,INC./RIDGEFIELD-2011-BP-02914BP

PATIENT
  Sex: Female

DRUGS (8)
  1. PRADAXA [Suspect]
     Indication: CARDIAC PACEMAKER INSERTION
  2. METOPROLOL [Concomitant]
  3. PRADAXA [Suspect]
     Indication: ATRIAL FIBRILLATION
  4. BONIVA [Concomitant]
  5. METHOTREXATE [Concomitant]
  6. DIURETICS [Concomitant]
     Indication: SWELLING
  7. DIURETICS [Concomitant]
     Indication: ARTHRITIS
  8. FOLIC ACID [Concomitant]

REACTIONS (4)
  - GASTROINTESTINAL TRACT IRRITATION [None]
  - ABDOMINAL PAIN UPPER [None]
  - PANCREATITIS [None]
  - MALAISE [None]
